FAERS Safety Report 20382238 (Version 1)
Quarter: 2022Q1

REPORT INFORMATION
  Report Type: Spontaneous
  Country: US (occurrence: US)
  Receive Date: 20220127
  Receipt Date: 20220127
  Transmission Date: 20220423
  Serious: No
  Sender: FDA-Public Use
  Company Number: US-BEH-2022141271

PATIENT
  Age: 78 Year
  Sex: Female

DRUGS (1)
  1. PRIVIGEN [Suspect]
     Active Substance: HUMAN IMMUNOGLOBULIN G
     Dosage: 40 GRAM
     Route: 065
     Dates: start: 20220119

REACTIONS (6)
  - Pruritus [Recovered/Resolved]
  - Recalled product administered [Recovered/Resolved]
  - Rash [Recovering/Resolving]
  - Recalled product administered [Recovering/Resolving]
  - Urticaria [Recovering/Resolving]
  - Recalled product administered [Recovering/Resolving]

NARRATIVE: CASE EVENT DATE: 20220119
